FAERS Safety Report 4502015-1 (Version None)
Quarter: 2004Q4

REPORT INFORMATION
  Report Type: 
  Country: None (occurrence: None)
  Receive Date: 20041115
  Receipt Date: 20041115
  Transmission Date: 20050328
  Serious: Yes (Hospitalization)
  Sender: FDA-Public Use
  Company Number: None

PATIENT
  Age: 59 Year
  Sex: Male
  Weight: 95.4 kg

DRUGS (42)
  1. WARFARIN SODIUM [Suspect]
  2. PAROXETINE HCL [Concomitant]
  3. CLINDAMYCIN HCL [Concomitant]
  4. INSULIN [Concomitant]
  5. PREDNISONE [Concomitant]
  6. WARFARIN SODIUM [Concomitant]
  7. TEMAZEPAM [Concomitant]
  8. CLOTRIMAZOLE [Concomitant]
  9. DILTIAZEM [Concomitant]
  10. FLUNISOLIDE [Concomitant]
  11. FORMOTEROL [Concomitant]
  12. GATIFLOXACIN [Concomitant]
  13. IPRATROPIUM/ALBUTEROL INHALER [Concomitant]
  14. DESENEX TOPICAL POWDER [Concomitant]
  15. OMEPRAZOLE [Concomitant]
  16. IBUPROFEN [Concomitant]
  17. ALBUTEROL ORAL INHALER [Concomitant]
  18. CICLOPIROX OLAMINE [Concomitant]
  19. LOPERAMIDE HCL [Concomitant]
  20. PANCRELIPASE [Concomitant]
  21. RANITIDINE [Concomitant]
  22. HYDROCODONE 5.0MG/ACETAMINOPHEN [Concomitant]
  23. MULTIVITAMIN WITH MINERALS [Concomitant]
  24. TERAZOSIN HCL [Concomitant]
  25. THIAMINE [Concomitant]
  26. ATENOLOL [Concomitant]
  27. CLONAZEPAM [Concomitant]
  28. IBUPROFEN GEL [Concomitant]
  29. VALPROIC ACID [Concomitant]
  30. ASPIRIN [Concomitant]
  31. INSULIN SYRINGES [Concomitant]
  32. COLCHICINE [Concomitant]
  33. FOSINOPRIL SODIUM [Concomitant]
  34. SILVADENE [Concomitant]
  35. SIMVASTATIN [Concomitant]
  36. ALPRAZOLAM [Concomitant]
  37. ALPROSTADIL [Concomitant]
  38. ANTACID CONCENTRATE [Concomitant]
  39. ACETAMINOPHEN W/ CODEINE [Concomitant]
  40. FOLIC ACID [Concomitant]
  41. ALLOPURINOL [Concomitant]
  42. GABAPENTIN [Concomitant]

REACTIONS (1)
  - INTERNATIONAL NORMALISED RATIO INCREASED [None]
